FAERS Safety Report 8221291-5 (Version None)
Quarter: 2012Q1

REPORT INFORMATION
  Report Type: 
  Country: None (occurrence: None)
  Receive Date: 20120320
  Receipt Date: 20120314
  Transmission Date: 20120608
  Serious: Yes (Disabling)
  Sender: FDA-Public Use
  Company Number: US-PFIZER INC-2012061272

PATIENT
  Sex: Female

DRUGS (3)
  1. PROTONIX [Suspect]
     Dosage: 40, QD
  2. CELEBREX [Suspect]
     Dosage: 200, QD
  3. WELLBUTRIN [Concomitant]
     Dosage: 150 BID

REACTIONS (1)
  - GENERAL PHYSICAL HEALTH DETERIORATION [None]
